FAERS Safety Report 13068473 (Version 1)
Quarter: 2016Q4

REPORT INFORMATION
  Report Type: Spontaneous
  Country: US (occurrence: US)
  Receive Date: 20161227
  Receipt Date: 20161227
  Transmission Date: 20170207
  Serious: Yes (Other)
  Sender: FDA-Public Use
  Company Number: None

PATIENT
  Age: 36 Year
  Sex: Male
  Weight: 75.6 kg

DRUGS (11)
  1. PARNATE [Concomitant]
     Active Substance: TRANYLCYPROMINE SULFATE
  2. FISH OIL [Concomitant]
     Active Substance: FISH OIL
  3. MULTIVITAMIN [Concomitant]
     Active Substance: VITAMINS
  4. EXTRA B VITAMIN [Concomitant]
  5. FANAPT [Suspect]
     Active Substance: ILOPERIDONE
     Indication: PSYCHOTIC DISORDER
     Dosage: ?          QUANTITY:2 TABLET(S);?
     Route: 048
     Dates: start: 20160301, end: 20160601
  6. LAMICTAL [Concomitant]
     Active Substance: LAMOTRIGINE
  7. BUSPAR [Concomitant]
     Active Substance: BUSPIRONE HYDROCHLORIDE
  8. FOLIC ACID. [Concomitant]
     Active Substance: FOLIC ACID
  9. FANAPT [Suspect]
     Active Substance: ILOPERIDONE
     Indication: AGITATION
     Dosage: ?          QUANTITY:2 TABLET(S);?
     Route: 048
     Dates: start: 20160301, end: 20160601
  10. CLONAZEPAM. [Concomitant]
     Active Substance: CLONAZEPAM
  11. VIMPAT [Concomitant]
     Active Substance: LACOSAMIDE

REACTIONS (11)
  - Eructation [None]
  - Asthenia [None]
  - Weight increased [None]
  - Disturbance in attention [None]
  - Memory impairment [None]
  - Nerve injury [None]
  - Apathy [None]
  - Dysphagia [None]
  - Dyspnoea [None]
  - Middle insomnia [None]
  - Insomnia [None]

NARRATIVE: CASE EVENT DATE: 20160701
